FAERS Safety Report 5026875-3 (Version None)
Quarter: 2006Q2

REPORT INFORMATION
  Report Type: 
  Country: None (occurrence: None)
  Receive Date: 20060609
  Receipt Date: 20060601
  Transmission Date: 20061013
  Serious: Yes (Hospitalization)
  Sender: FDA-Public Use
  Company Number: HQWYE926605JUN06

PATIENT
  Age: 11 Year
  Sex: Male

DRUGS (9)
  1. CELLCEPT [Suspect]
     Indication: PROPHYLAXIS AGAINST TRANSPLANT REJECTION
     Dosage: 750 MG 1X PER 1 DAY ORAL; 1250 MG 1X PER 1 DAY ORAL;  1000 MG 1X PER 1 DAY ORAL
     Route: 048
     Dates: start: 20041201, end: 20051020
  2. CELLCEPT [Suspect]
     Indication: PROPHYLAXIS AGAINST TRANSPLANT REJECTION
     Dosage: 750 MG 1X PER 1 DAY ORAL; 1250 MG 1X PER 1 DAY ORAL;  1000 MG 1X PER 1 DAY ORAL
     Route: 048
     Dates: start: 20051021, end: 20060115
  3. CELLCEPT [Suspect]
     Indication: PROPHYLAXIS AGAINST TRANSPLANT REJECTION
     Dosage: 750 MG 1X PER 1 DAY ORAL; 1250 MG 1X PER 1 DAY ORAL;  1000 MG 1X PER 1 DAY ORAL
     Route: 048
     Dates: start: 20060116
  4. PREDNISONE TAB [Concomitant]
  5. TACROLIUMS [Concomitant]
  6. ENALAPRIL MALEATE [Concomitant]
  7. DOCUSATE SODIUM (DOCUSATE SODIUM) [Concomitant]
  8. CALCITRIOL [Concomitant]
  9. FOLIC ACID [Concomitant]

REACTIONS (3)
  - BLOOD CREATININE INCREASED [None]
  - DEHYDRATION [None]
  - HYPONATRAEMIA [None]
